FAERS Safety Report 7935868 (Version 3)
Quarter: 2017Q2

REPORT INFORMATION
  Report Type: Report from Study
  Country: FR (occurrence: FR)
  Receive Date: 20120912
  Receipt Date: 20170606
  Transmission Date: 20170830
  Serious: Yes (Hospitalization)
  Sender: FDA-Public Use
  Company Number: PHHY2011FR36700

PATIENT
  Age: 13 Year
  Sex: Male
  Weight: 31 kg

DRUGS (1)
  1. SOMATROPIN [Suspect]
     Active Substance: SOMATROPIN
     Indication: GROWTH HORMONE DEFICIENCY
     Dosage: 1.5 MG, QD  (STRENGTH: 6.7 MG/ML)
     Route: 058
     Dates: start: 20090315, end: 20091025

REACTIONS (4)
  - Skull fractured base [Unknown]
  - Concussion [Recovered/Resolved]
  - Extradural haematoma [Recovered/Resolved]
  - Pain [Unknown]
